FAERS Safety Report 23569435 (Version 1)
Quarter: 2024Q1

REPORT INFORMATION
  Report Type: Spontaneous
  Country: PR (occurrence: PR)
  Receive Date: 20240227
  Receipt Date: 20240227
  Transmission Date: 20240410
  Serious: No
  Sender: FDA-Public Use
  Company Number: PR-ABBVIE-5651459

PATIENT

DRUGS (1)
  1. BOTOX COSMETIC [Suspect]
     Active Substance: ONABOTULINUMTOXINA
     Indication: Skin cosmetic procedure
     Dosage: TIME INTERVAL: AS NECESSARY
     Route: 065

REACTIONS (7)
  - Migraine [Unknown]
  - Impaired work ability [Unknown]
  - Photophobia [Unknown]
  - Vomiting [Unknown]
  - Nausea [Unknown]
  - Perfume sensitivity [Unknown]
  - Hyperacusis [Unknown]
